FAERS Safety Report 5620233-6 (Version None)
Quarter: 2008Q1

REPORT INFORMATION
  Report Type: 
  Country: None (occurrence: None)
  Receive Date: 20080208
  Receipt Date: 20080204
  Transmission Date: 20080703
  Serious: Yes (Other)
  Sender: FDA-Public Use
  Company Number: A0708196A

PATIENT

DRUGS (1)
  1. PAXIL [Suspect]
     Route: 048

REACTIONS (15)
  - ALLERGY TO CHEMICALS [None]
  - ANXIETY [None]
  - CHEST PAIN [None]
  - DEPRESSION [None]
  - DYSPNOEA [None]
  - EMOTIONAL DISORDER [None]
  - FEELING ABNORMAL [None]
  - FOOD ALLERGY [None]
  - INSOMNIA [None]
  - MANIA [None]
  - MORBID THOUGHTS [None]
  - PANIC ATTACK [None]
  - PARAESTHESIA [None]
  - SENSORY DISTURBANCE [None]
  - SEXUAL DYSFUNCTION [None]
